FAERS Safety Report 14577142 (Version 1)
Quarter: 2018Q1

REPORT INFORMATION
  Report Type: Spontaneous
  Country: US (occurrence: US)
  Receive Date: 20180225
  Receipt Date: 20180225
  Transmission Date: 20180509
  Serious: Yes (Hospitalization)
  Sender: FDA-Public Use
  Company Number: None

PATIENT
  Age: 66 Year
  Sex: Male
  Weight: 83.91 kg

DRUGS (2)
  1. LOSARTAN. [Suspect]
     Active Substance: LOSARTAN
     Indication: HYPERTENSION
     Route: 048
     Dates: start: 20060315, end: 20171014
  2. METOPROLOL. [Suspect]
     Active Substance: METOPROLOL
     Indication: CORONARY ARTERY DISEASE
     Route: 048
     Dates: start: 20060315, end: 20171014

REACTIONS (11)
  - Syncope [None]
  - Angioedema [None]
  - Pruritus [None]
  - Discomfort [None]
  - Pulmonary hypertension [None]
  - Loss of consciousness [None]
  - Lip swelling [None]
  - Chronic kidney disease [None]
  - Mitral valve incompetence [None]
  - Bradycardia [None]
  - Pharyngeal oedema [None]

NARRATIVE: CASE EVENT DATE: 20171014
